FAERS Safety Report 6030068-0 (Version None)
Quarter: 2009Q1

REPORT INFORMATION
  Report Type: 
  Country: None (occurrence: None)
  Receive Date: 20090106
  Receipt Date: 20090106
  Transmission Date: 20090719
  Serious: Yes (Other)
  Sender: FDA-Public Use
  Company Number: None

PATIENT
  Age: 35 Year
  Sex: Female
  Weight: 70.3075 kg

DRUGS (2)
  1. CANASA [Suspect]
     Indication: GASTROINTESTINAL INFLAMMATION
     Dosage: 2 DAYS AT 1 X DAY
     Dates: start: 20080912, end: 20080919
  2. CANASA [Suspect]
     Indication: GASTROINTESTINAL INFLAMMATION
     Dosage: 2 DAYS AT 1 X DAY
     Dates: start: 20081102, end: 20081104

REACTIONS (6)
  - CHEST DISCOMFORT [None]
  - CHEST PAIN [None]
  - NECK PAIN [None]
  - PALPITATIONS [None]
  - TACHYCARDIA [None]
  - THROMBOSIS [None]
